FAERS Safety Report 5098082-X (Version None)
Quarter: 2006Q3

REPORT INFORMATION
  Report Type: 
  Country: None (occurrence: None)
  Receive Date: 20060906
  Receipt Date: 20060509
  Transmission Date: 20061208
  Serious: Yes (Death)
  Sender: FDA-Public Use
  Company Number: US-ABBOTT-06P-163-0332748-00

PATIENT
  Sex: Male
  Weight: 121.4 kg

DRUGS (7)
  1. SYNTHROID [Suspect]
     Indication: HYPOTHYROIDISM
     Route: 048
     Dates: start: 20000918, end: 20060401
  2. SYNTHROID [Suspect]
     Indication: AUTOIMMUNE THYROIDITIS
  3. CARVEDILOL [Concomitant]
     Indication: CARDIAC FAILURE CONGESTIVE
  4. ATORVASTATIN CALCIUM [Concomitant]
     Indication: HYPERLIPIDAEMIA
  5. LISINOPRIL [Concomitant]
     Indication: CARDIAC FAILURE CONGESTIVE
  6. GLIBENCLAMIDE [Concomitant]
     Indication: DIABETES MELLITUS
  7. LANSOPRAZOLE [Concomitant]
     Indication: GASTROOESOPHAGEAL REFLUX DISEASE

REACTIONS (1)
  - COLON CANCER METASTATIC [None]
